FAERS Safety Report 9147291 (Version 1)
Quarter: 2013Q1

REPORT INFORMATION
  Report Type: Report from Study
  Country: CA (occurrence: CA)
  Receive Date: 20130307
  Receipt Date: 20130307
  Transmission Date: 20140127
  Serious: Yes (Hospitalization, Other)
  Sender: FDA-Public Use
  Company Number: CA-ROCHE-1197934

PATIENT
  Age: 47 Year
  Sex: Male
  Weight: 90.7 kg

DRUGS (3)
  1. ACTEMRA [Suspect]
     Indication: JUVENILE IDIOPATHIC ARTHRITIS
     Route: 042
     Dates: start: 20121107
  2. METHOTREXATE [Concomitant]
  3. TYLENOL [Concomitant]
     Dosage: AS REQUIRED.
     Route: 065

REACTIONS (6)
  - Back pain [Recovered/Resolved]
  - Drug hypersensitivity [Unknown]
  - Hypoaesthesia [Unknown]
  - Gait disturbance [Unknown]
  - Infection [Unknown]
  - Pneumonia [Recovered/Resolved]
